FAERS Safety Report 4308943-4 (Version None)
Quarter: 2004Q1

REPORT INFORMATION
  Report Type: 
  Country: None (occurrence: None)
  Receive Date: 20040227
  Receipt Date: 20040217
  Transmission Date: 20041129
  Serious: Yes (Death, Hospitalization)
  Sender: FDA-Public Use
  Company Number: US-JNJFOC-20040105411

PATIENT
  Age: 62 Year
  Sex: Male
  Weight: 78.0187 kg

DRUGS (8)
  1. REMICADE [Suspect]
     Indication: RHEUMATOID ARTHRITIS
     Dosage: 5 MG/KG, INTRAVENOUS
     Route: 042
     Dates: start: 20020719
  2. METHOTREXATE SODIUM [Concomitant]
  3. PREDNISONE [Concomitant]
  4. FOSAMAX [Concomitant]
  5. LOTRIL (LOTREL) [Concomitant]
  6. TOPROL (METOPROLOL SUCCINATE) [Concomitant]
  7. LIPITOR [Concomitant]
  8. MVI (MULTIVITAMINS) [Concomitant]

REACTIONS (1)
  - PNEUMOCYSTIS CARINII PNEUMONIA [None]
